FAERS Safety Report 25233551 (Version 1)
Quarter: 2025Q2

REPORT INFORMATION
  Report Type: Spontaneous
  Country: CZ (occurrence: CZ)
  Receive Date: 20250424
  Receipt Date: 20250424
  Transmission Date: 20250716
  Serious: Yes (Other)
  Sender: GILEAD
  Company Number: CZ-GILEAD-2025-0710534

PATIENT
  Age: 41 Year
  Sex: Male

DRUGS (4)
  1. TRUVADA [Suspect]
     Active Substance: EMTRICITABINE\TENOFOVIR DISOPROXIL FUMARATE
     Indication: Product used for unknown indication
     Dosage: UNK, BID
     Route: 065
     Dates: start: 2021
  2. RAL [Concomitant]
     Dosage: UNK, BID
  3. DOLUTEGRAVIR [Concomitant]
     Active Substance: DOLUTEGRAVIR
  4. LAMIVUDINE [Concomitant]
     Active Substance: LAMIVUDINE

REACTIONS (6)
  - Hepatitis B [Unknown]
  - Pneumocystis jirovecii pneumonia [Unknown]
  - Viral load abnormal [Unknown]
  - Latent syphilis [Unknown]
  - CD4 lymphocytes decreased [Unknown]
  - Drug resistance [Unknown]

NARRATIVE: CASE EVENT DATE: 20210701
